FAERS Safety Report 10072139 (Version 2)
Quarter: 2014Q2

REPORT INFORMATION
  Report Type: Spontaneous
  Country: US (occurrence: None)
  Receive Date: 20140409
  Receipt Date: 20140528
  Transmission Date: 20141212
  Serious: Yes (Hospitalization)
  Sender: FDA-Public Use
  Company Number: 2271494

PATIENT
  Age: 72 Year
  Sex: Male
  Weight: 98 kg

DRUGS (40)
  1. GEMCITABINE FOR INJECTION (GEMCITABINE HYDROCHLORIDE) [Suspect]
     Indication: BLADDER CANCER
     Route: 041
     Dates: start: 20130227
  2. INVESTIGATIONAL DRUG [Suspect]
     Indication: BLADDER CANCER
     Route: 041
     Dates: start: 20130227
  3. CISPLATIN [Suspect]
     Indication: BLADDER CANCER
     Route: 041
     Dates: start: 20130227
  4. SERETIDE [Concomitant]
  5. MEFENAMIC ACID [Concomitant]
  6. INSULIN GLULISINE [Concomitant]
  7. AZELASTINE HYDROCHLORIDE) [Concomitant]
  8. WARFARIN [Concomitant]
  9. ROSUVASTATIN [Concomitant]
  10. CYANOCOBALAMIN [Concomitant]
  11. COMBIVENT [Concomitant]
  12. AZELAIC ACID [Concomitant]
  13. GABAPENTIN [Concomitant]
  14. METFORMIN [Concomitant]
  15. HYDROCODONE [Concomitant]
  16. HYDROCORTISONE ACETATE [Concomitant]
  17. INSULIN DETEMIR [Concomitant]
  18. DOXYCYCLINE [Concomitant]
  19. SALBUTAMOL SULFATE [Concomitant]
  20. PANTOPRAZOLE [Concomitant]
  21. FLUOXETINE [Concomitant]
  22. METOPROLOL SUCCINATE [Concomitant]
  23. PARACETAMOL [Concomitant]
  24. ERGOCALCIFEROL [Concomitant]
  25. MACROGOL [Concomitant]
  26. BISACODYL [Concomitant]
  27. PROCHLORPERAZINE [Concomitant]
  28. ONDANSETRON [Concomitant]
  29. DEXAMETHASONE [Concomitant]
  30. FUROSEMIDE [Concomitant]
  31. BISMUTH SUBSALICYLATE [Concomitant]
  32. LOPERAMDE HYDROCHLORIDE [Concomitant]
  33. LOPERAMIDE HYDROCHLORIDE [Concomitant]
  34. DIPHENHYDRAMINE HYDROCHLORIDE [Concomitant]
  35. ONDANSETRON [Concomitant]
  36. OXYMETAZOLINE HYDROCHLORIDE [Concomitant]
  37. FLUTICASONE FUROATE [Concomitant]
  38. NITE-TIME COLD MEDICINE [Concomitant]
  39. AMOXICILLIN [Concomitant]
  40. GABAPENTIN [Concomitant]

REACTIONS (11)
  - Hyponatraemia [None]
  - Urinary tract infection [None]
  - Anaemia [None]
  - Blood creatinine increased [None]
  - Hypomagnesaemia [None]
  - Diarrhoea [None]
  - Renal failure chronic [None]
  - Atelectasis [None]
  - Blood glucose increased [None]
  - Platelet count increased [None]
  - White blood cell count decreased [None]
